FAERS Safety Report 14149607 (Version 1)
Quarter: 2017Q4

REPORT INFORMATION
  Report Type: Spontaneous
  Country: US (occurrence: US)
  Receive Date: 20171101
  Receipt Date: 20171101
  Transmission Date: 20180321
  Serious: Yes (Disabling)
  Sender: FDA-Public Use
  Company Number: None

PATIENT
  Age: 66 Year
  Sex: Female
  Weight: 37.35 kg

DRUGS (8)
  1. RECLAST [Suspect]
     Active Substance: ZOLEDRONIC ACID
     Indication: OSTEOPOROSIS
     Dosage: ?          OTHER FREQUENCY:YEARLY;OTHER ROUTE:INFUSION?
     Dates: start: 20170608, end: 20170608
  2. BACLOFEN. [Concomitant]
     Active Substance: BACLOFEN
  3. VITAMIN C [Concomitant]
     Active Substance: ASCORBIC ACID
  4. CALCIUM W/D3 [Concomitant]
  5. KEPPRA [Concomitant]
     Active Substance: LEVETIRACETAM
  6. ASA [Concomitant]
     Active Substance: ASPIRIN
  7. MULTIVITAMIN [Concomitant]
     Active Substance: VITAMINS
  8. LISINOPRIL. [Concomitant]
     Active Substance: LISINOPRIL

REACTIONS (3)
  - Balance disorder [None]
  - Asthenia [None]
  - Loss of personal independence in daily activities [None]

NARRATIVE: CASE EVENT DATE: 20170608
